FAERS Safety Report 6453695-5 (Version None)
Quarter: 2009Q4

REPORT INFORMATION
  Report Type: 
  Country: None (occurrence: None)
  Receive Date: 20091117
  Receipt Date: 20091104
  Transmission Date: 20100525
  Serious: Yes (Hospitalization)
  Sender: FDA-Public Use
  Company Number: 2009AC000308

PATIENT
  Age: 79 Year
  Sex: Female

DRUGS (25)
  1. DIGOXIN [Suspect]
     Dosage: PO
     Route: 048
     Dates: start: 20080414
  2. ASPIRIN [Concomitant]
  3. ZETIA [Concomitant]
  4. ZOCOR [Concomitant]
  5. LASIX [Concomitant]
  6. INSULIN [Concomitant]
  7. PRINIVIL [Concomitant]
  8. PREDNISONE [Concomitant]
  9. ALBUTEROL [Concomitant]
  10. LOVENOX [Concomitant]
  11. ATROVENT [Concomitant]
  12. CALAN [Concomitant]
  13. COUMADIN [Concomitant]
  14. LEVAQUIN [Concomitant]
  15. PROTONIX [Concomitant]
  16. POTASSIUM [Concomitant]
  17. ADVAIR DISKUS 100/50 [Concomitant]
  18. MUCINEX [Concomitant]
  19. VERAPAMIL [Concomitant]
  20. IRON [Concomitant]
  21. LISINOPRIL [Concomitant]
  22. PLAVIX [Concomitant]
  23. XANAX [Concomitant]
  24. CATAPRES [Concomitant]
  25. TYLENOL (CAPLET) [Concomitant]

REACTIONS (21)
  - ANAEMIA [None]
  - ATRIAL FIBRILLATION [None]
  - CARDIAC FAILURE CONGESTIVE [None]
  - CHEST PAIN [None]
  - CHOLELITHIASIS [None]
  - CHRONIC OBSTRUCTIVE PULMONARY DISEASE [None]
  - CONDITION AGGRAVATED [None]
  - CORONARY ARTERY DISEASE [None]
  - DIABETES MELLITUS [None]
  - ECONOMIC PROBLEM [None]
  - FATIGUE [None]
  - HYPERTENSION [None]
  - INTRA-ABDOMINAL HAEMATOMA [None]
  - LUNG DISORDER [None]
  - MULTIPLE INJURIES [None]
  - PANCREATITIS ACUTE [None]
  - PARTNER STRESS [None]
  - PNEUMONIA [None]
  - PULMONARY HYPERTENSION [None]
  - SYNCOPE [None]
  - THERAPEUTIC AGENT TOXICITY [None]
